FAERS Safety Report 8969385 (Version 1)
Quarter: 2012Q4

REPORT INFORMATION
  Report Type: 
  Country: US (occurrence: US)
  Receive Date: 20121218
  Receipt Date: 20121218
  Transmission Date: 20130627
  Serious: No
  Sender: FDA-Public Use
  Company Number: US-BRISTOL-MYERS SQUIBB COMPANY-16630568

PATIENT
  Age: 45 Year
  Sex: Female

DRUGS (2)
  1. ABILIFY [Suspect]
     Indication: BIPOLAR DISORDER
     Dosage: Started with 5mg,Increased to 10mg on mar 19th and again on 19th Apr to dose of 20mg
     Dates: start: 201202
  2. LITHIUM [Suspect]

REACTIONS (1)
  - Akathisia [Unknown]
